FAERS Safety Report 23231579 (Version 1)
Quarter: 2023Q4

REPORT INFORMATION
  Report Type: Spontaneous
  Country: CA (occurrence: CA)
  Receive Date: 20231127
  Receipt Date: 20231127
  Transmission Date: 20240110
  Serious: Yes (Other)
  Sender: FDA-Public Use
  Company Number: CA-TAKEDA-2023TUS112578

PATIENT
  Age: 72 Year
  Sex: Male
  Weight: 80 kg

DRUGS (1)
  1. GAMMAGARD LIQUID [Suspect]
     Active Substance: HUMAN IMMUNOGLOBULIN G
     Indication: Multifocal motor neuropathy
     Dosage: UNK
     Route: 042
     Dates: start: 20231026, end: 20231026

REACTIONS (16)
  - Hypoglycaemia [Recovered/Resolved]
  - Piloerection [Recovered/Resolved]
  - Infection [Unknown]
  - Drug hypersensitivity [Unknown]
  - Pituitary tumour benign [Unknown]
  - Decreased appetite [Recovered/Resolved]
  - Feeling cold [Recovered/Resolved]
  - Vision blurred [Recovered/Resolved]
  - Body temperature increased [Recovered/Resolved]
  - Insomnia [Recovered/Resolved]
  - Hyperhidrosis [Recovered/Resolved]
  - Chills [Recovered/Resolved]
  - Hypotension [Recovered/Resolved]
  - Dizziness [Recovered/Resolved]
  - Headache [Recovered/Resolved]
  - Off label use [Unknown]

NARRATIVE: CASE EVENT DATE: 20231026
